FAERS Safety Report 8176276-4 (Version None)
Quarter: 2012Q1

REPORT INFORMATION
  Report Type: 
  Country: None (occurrence: None)
  Receive Date: 20120117
  Receipt Date: 20111104
  Transmission Date: 20120608
  Serious: Yes (Other)
  Sender: FDA-Public Use
  Company Number: 2011005716

PATIENT
  Age: 57 Year
  Sex: Female
  Weight: 72.5755 kg

DRUGS (5)
  1. ASPIRIN [Concomitant]
  2. CRESTOR [Concomitant]
  3. NUVIGIL [Suspect]
     Indication: SLEEP APNOEA SYNDROME
     Dosage: (250 MG),ORAL ; (150 MG),ORAL
     Route: 048
     Dates: start: 20111104, end: 20111107
  4. NUVIGIL [Suspect]
     Indication: SLEEP APNOEA SYNDROME
     Dosage: (250 MG),ORAL ; (150 MG),ORAL
     Route: 048
     Dates: start: 20111108
  5. AMITRIPTYLINE HCL [Concomitant]

REACTIONS (5)
  - PALPITATIONS [None]
  - ANXIETY [None]
  - FEELING JITTERY [None]
  - BLOOD PRESSURE SYSTOLIC INCREASED [None]
  - JOINT STIFFNESS [None]
